FAERS Safety Report 7277224-1 (Version None)
Quarter: 2011Q1

REPORT INFORMATION
  Report Type: 
  Country: None (occurrence: None)
  Receive Date: 20110202
  Receipt Date: 20110202
  Transmission Date: 20110831
  Serious: Yes (Life-Threatening, Hospitalization)
  Sender: FDA-Public Use
  Company Number: None

PATIENT
  Age: 67 Year
  Sex: Female

DRUGS (11)
  1. DOCUSATE CALCIUM [Concomitant]
  2. ARIPIPRAZOLE [Concomitant]
  3. DIVALPROEX EXTENDED-RELEASE [Concomitant]
  4. LOVENOX [Suspect]
     Indication: INTERNATIONAL NORMALISED RATIO DECREASED
     Dosage: 65 MG TWICE DAILY SQ
     Route: 058
     Dates: start: 20101025, end: 20101101
  5. VALSARTAN [Concomitant]
  6. SIMVASTATIN [Concomitant]
  7. PHENYTOIN [Concomitant]
  8. ROLOXIFENE [Concomitant]
  9. AMLODIPINE [Concomitant]
  10. WARFARIN [Concomitant]
  11. PEG [Concomitant]

REACTIONS (8)
  - ARTERIAL HAEMORRHAGE [None]
  - INTERNATIONAL NORMALISED RATIO INCREASED [None]
  - HAEMATOCRIT DECREASED [None]
  - NEUTROPHIL COUNT DECREASED [None]
  - HAEMOGLOBIN DECREASED [None]
  - INTERNATIONAL NORMALISED RATIO DECREASED [None]
  - RED BLOOD CELL COUNT DECREASED [None]
  - INJECTION SITE HAEMATOMA [None]
